FAERS Safety Report 5109460-4 (Version None)
Quarter: 2006Q3

REPORT INFORMATION
  Report Type: 
  Country: None (occurrence: None)
  Receive Date: 20060920
  Receipt Date: 20060919
  Transmission Date: 20061208
  Serious: Yes (Death)
  Sender: FDA-Public Use
  Company Number: FR-ROXANE LABORATORIES, INC-2006-BP-10993RO

PATIENT
  Age: 27 Year
  Sex: Male

DRUGS (2)
  1. MEFLOQUINE [Suspect]
     Indication: MALARIA
  2. PROGUANIL-CHLOROQUINE [Suspect]
     Indication: MALARIA PROPHYLAXIS

REACTIONS (7)
  - COMPLETED SUICIDE [None]
  - CONTUSION [None]
  - DRUG INEFFECTIVE [None]
  - HAEMOTHORAX [None]
  - MALARIA [None]
  - MENTAL DISORDER [None]
  - WOUND [None]
